FAERS Safety Report 5536415-8 (Version None)
Quarter: 2007Q4

REPORT INFORMATION
  Report Type: 
  Country: None (occurrence: None)
  Receive Date: 20071204
  Receipt Date: 20071126
  Transmission Date: 20080405
  Serious: Yes (Death, Life-Threatening)
  Sender: FDA-Public Use
  Company Number: 430005E07ITA

PATIENT
  Age: 67 Year
  Sex: Male

DRUGS (6)
  1. NOVANTRONE [Suspect]
     Indication: ACUTE MYELOID LEUKAEMIA
     Dosage: 10 MG, INTRAVENOUS
     Route: 042
     Dates: start: 20070318, end: 20070323
  2. CYTARABINE [Suspect]
     Indication: ACUTE MYELOID LEUKAEMIA
     Dosage: 150 MG, INTRAVENOUS
     Route: 042
     Dates: start: 20070319, end: 20070323
  3. ETOPOSIDE [Suspect]
     Indication: ACUTE MYELOID LEUKAEMIA
     Dosage: 150 MG, INTRAVENOUS
     Route: 042
     Dates: start: 20070319, end: 20070321
  4. INSULIN [Concomitant]
  5. BACLOFEN [Concomitant]
  6. MESALAMINE [Concomitant]

REACTIONS (26)
  - CARDIAC INFECTION [None]
  - CENTRAL NERVOUS SYSTEM INFECTION [None]
  - CEREBRAL HAEMORRHAGE [None]
  - CHOLECYSTITIS [None]
  - DIVERTICULITIS [None]
  - DIVERTICULUM [None]
  - EMPHYSEMA [None]
  - GASTROINTESTINAL HAEMORRHAGE [None]
  - GASTROINTESTINAL INFECTION [None]
  - HEPATIC FAILURE [None]
  - HEPATIC HAEMORRHAGE [None]
  - HEPATIC INFECTION [None]
  - HYPOTENSION [None]
  - IMMUNOSUPPRESSION [None]
  - KIDNEY INFECTION [None]
  - LUNG INFECTION [None]
  - MELAENA [None]
  - MYOCARDIAL HAEMORRHAGE [None]
  - PERITONITIS [None]
  - PLATELET COUNT DECREASED [None]
  - PULMONARY HAEMORRHAGE [None]
  - PULMONARY OEDEMA [None]
  - RENAL HAEMORRHAGE [None]
  - SEPSIS [None]
  - VENTRICULAR HYPERTROPHY [None]
  - WHITE BLOOD CELL COUNT DECREASED [None]
